FAERS Safety Report 16006161 (Version 1)
Quarter: 2019Q1

REPORT INFORMATION
  Report Type: Spontaneous
  Country: JP (occurrence: JP)
  Receive Date: 20190226
  Receipt Date: 20190226
  Transmission Date: 20190418
  Serious: Yes (Hospitalization, Other)
  Sender: FDA-Public Use
  Company Number: JP-PFIZER INC-2019069467

PATIENT
  Age: 49 Year
  Sex: Female

DRUGS (5)
  1. 5-FU [FLUOROURACIL] [Concomitant]
     Active Substance: FLUOROURACIL
  2. BEVACIZUMAB. [Concomitant]
     Active Substance: BEVACIZUMAB
  3. IRINOTECAN [IRINOTECAN HYDROCHLORIDE] [Concomitant]
  4. OXALIPLATIN. [Suspect]
     Active Substance: OXALIPLATIN
  5. LEVOLEUCOVORIN CALCIUM. [Concomitant]
     Active Substance: LEVOLEUCOVORIN CALCIUM

REACTIONS (2)
  - Splenomegaly [Recovered/Resolved]
  - Platelet count decreased [Recovered/Resolved]
